FAERS Safety Report 18541630 (Version 6)
Quarter: 2022Q2

REPORT INFORMATION
  Report Type: Report from Study
  Country: US (occurrence: US)
  Receive Date: 20201124
  Receipt Date: 20220413
  Transmission Date: 20220721
  Serious: Yes (Other)
  Sender: FDA-Public Use
  Company Number: US-TAKEDA-2020TUS047329

PATIENT
  Age: 76 Year
  Sex: Male

DRUGS (3)
  1. HUMAN IMMUNOGLOBULIN G [Suspect]
     Active Substance: HUMAN IMMUNOGLOBULIN G
     Indication: Primary immunodeficiency syndrome
     Dosage: 10 GRAM, 1/WEEK
     Route: 065
  2. COVID-19 VACCINE NOS [Suspect]
     Active Substance: COVID-19 VACCINE NOS
     Indication: Product used for unknown indication
     Dosage: UNK
     Route: 065
  3. INTERFERON [Suspect]
     Active Substance: INTERFERON
     Indication: Product used for unknown indication
     Route: 065

REACTIONS (21)
  - Addison^s disease [Unknown]
  - Gastrointestinal melanoma [Unknown]
  - Basal cell carcinoma [Unknown]
  - Influenza like illness [Not Recovered/Not Resolved]
  - Headache [Not Recovered/Not Resolved]
  - COVID-19 immunisation [Unknown]
  - Influenza [Unknown]
  - Infusion site extravasation [Recovered/Resolved]
  - Gastrointestinal disorder [Unknown]
  - Hepatic cyst [Unknown]
  - Pancreatic cyst [Unknown]
  - Eating disorder [Unknown]
  - Weight decreased [Unknown]
  - Joint injury [Unknown]
  - Pain in extremity [Unknown]
  - Chronic granulomatous disease [Unknown]
  - Fatigue [Not Recovered/Not Resolved]
  - Malaise [Unknown]
  - Asthenia [Unknown]
  - Dizziness [Unknown]
  - Sunburn [Unknown]

NARRATIVE: CASE EVENT DATE: 20201030
